FAERS Safety Report 6390644-2 (Version None)
Quarter: 2009Q4

REPORT INFORMATION
  Report Type: 
  Country: None (occurrence: None)
  Receive Date: 20091006
  Receipt Date: 20091002
  Transmission Date: 20100525
  Serious: Yes (Death, Other)
  Sender: FDA-Public Use
  Company Number: JP-SANOFI-SYNTHELABO-A01200909331

PATIENT
  Sex: Male

DRUGS (22)
  1. ONDANSETRON [Concomitant]
     Route: 065
     Dates: start: 20081007, end: 20090227
  2. PURSENNID [Concomitant]
     Route: 065
     Dates: start: 20080828, end: 20090705
  3. BLOPRESS [Concomitant]
     Route: 065
     Dates: start: 20080801, end: 20090630
  4. AMLODIPINE [Concomitant]
     Route: 065
     Dates: start: 20080801, end: 20081101
  5. HALCION [Concomitant]
     Route: 065
     Dates: end: 20090705
  6. LEVOFOLINATE [Suspect]
     Indication: RECTAL CANCER METASTATIC
     Route: 041
     Dates: start: 20090130, end: 20090227
  7. AVASTIN [Suspect]
     Indication: RECTAL CANCER METASTATIC
     Route: 042
     Dates: start: 20090130, end: 20090227
  8. FLUOROURACIL [Suspect]
     Indication: RECTAL CANCER METASTATIC
     Route: 041
     Dates: start: 20090130, end: 20090227
  9. PREDONINE [Suspect]
     Route: 048
     Dates: start: 20090701, end: 20090702
  10. GASTER [Concomitant]
     Route: 065
     Dates: start: 20081021, end: 20090701
  11. MUCOSTA [Concomitant]
     Route: 065
     Dates: start: 20081021, end: 20090629
  12. WAKADENIN [Concomitant]
     Route: 065
     Dates: start: 20081001, end: 20081101
  13. VITAMEDIN [Concomitant]
     Route: 065
     Dates: start: 20081001, end: 20081101
  14. LOPEMIN [Concomitant]
     Dates: start: 20081023, end: 20081105
  15. VOLTAREN [Suspect]
     Route: 065
     Dates: start: 20090616, end: 20090629
  16. RINDERON [Suspect]
     Route: 048
     Dates: start: 20090602, end: 20090630
  17. ERBITUX [Suspect]
     Indication: RECTAL CANCER METASTATIC
     Route: 041
     Dates: start: 20090317, end: 20090602
  18. LOXONIN [Suspect]
     Indication: PAIN PROPHYLAXIS
     Route: 048
     Dates: start: 20081021, end: 20090615
  19. DECADRON [Suspect]
     Route: 041
     Dates: start: 20081007, end: 20090602
  20. IRINOTECAN HYDROCHLORIDE [Suspect]
     Indication: RECTAL CANCER METASTATIC
     Route: 041
     Dates: start: 20081007, end: 20090424
  21. TS-1 [Suspect]
     Indication: RECTAL CANCER METASTATIC
     Route: 048
     Dates: start: 20081007, end: 20081027
  22. ELPLAT [Suspect]
     Indication: RECTAL CANCER METASTATIC
     Route: 041
     Dates: start: 20090130, end: 20090227

REACTIONS (9)
  - DISEASE PROGRESSION [None]
  - GASTRIC ULCER HAEMORRHAGE [None]
  - HAEMATEMESIS [None]
  - HAEMOGLOBIN DECREASED [None]
  - NAUSEA [None]
  - NEUTROPHIL COUNT DECREASED [None]
  - PLATELET COUNT DECREASED [None]
  - RESPIRATORY ARREST [None]
  - WHITE BLOOD CELL COUNT DECREASED [None]
